FAERS Safety Report 5070815-8 (Version None)
Quarter: 2006Q3

REPORT INFORMATION
  Report Type: 
  Country: None (occurrence: None)
  Receive Date: 20060804
  Receipt Date: 20060426
  Transmission Date: 20061208
  Serious: No
  Sender: FDA-Public Use
  Company Number: US-GLAXOSMITHKLINE-A0603321A

PATIENT
  Age: 50 Year
  Sex: Male

DRUGS (2)
  1. NICORETTE [Suspect]
     Dates: end: 20060425
  2. COMMIT [Suspect]

REACTIONS (3)
  - MALAISE [None]
  - NAUSEA [None]
  - NICOTINE DEPENDENCE [None]
